FAERS Safety Report 16228517 (Version 2)
Quarter: 2019Q2

REPORT INFORMATION
  Report Type: Report from Study
  Country: US (occurrence: US)
  Receive Date: 20190423
  Receipt Date: 20190424
  Transmission Date: 20190711
  Serious: Yes (Hospitalization, Other)
  Sender: FDA-Public Use
  Company Number: US-BRISTOL-MYERS SQUIBB COMPANY-BMS-2019-040090

PATIENT
  Age: 29 Year
  Sex: Male
  Weight: 79.6 kg

DRUGS (2)
  1. DASATINIB. [Suspect]
     Active Substance: DASATINIB
     Indication: LEUKAEMIA
     Dosage: 40 MILLIGRAM, QD
     Route: 048
     Dates: start: 20170817
  2. NIVOLUMAB [Suspect]
     Active Substance: NIVOLUMAB
     Indication: LEUKAEMIA
     Dosage: 240 MILLIGRAM, Q2WK
     Route: 042
     Dates: start: 20170817

REACTIONS (1)
  - Febrile neutropenia [Recovered/Resolved]

NARRATIVE: CASE EVENT DATE: 20170918
